FAERS Safety Report 10578262 (Version 1)
Quarter: 2014Q4

REPORT INFORMATION
  Report Type: Spontaneous
  Country: US (occurrence: None)
  Receive Date: 20141111
  Receipt Date: 20141111
  Transmission Date: 20150529
  Serious: No
  Sender: FDA-Public Use
  Company Number: None

PATIENT
  Age: 47 Year
  Sex: Female

DRUGS (1)
  1. TASIGNA [Suspect]
     Active Substance: NILOTINIB
     Route: 048
     Dates: start: 20140329, end: 20141027

REACTIONS (6)
  - Alopecia [None]
  - Back pain [None]
  - Rash [None]
  - Arthralgia [None]
  - Eye pain [None]
  - Nausea [None]
